FAERS Safety Report 4620302-3 (Version None)
Quarter: 2005Q1

REPORT INFORMATION
  Report Type: 
  Country: None (occurrence: None)
  Receive Date: 20050324
  Receipt Date: 20050314
  Transmission Date: 20050727
  Serious: Yes (Other)
  Sender: FDA-Public Use
  Company Number: 2005044446

PATIENT
  Sex: Female

DRUGS (1)
  1. BENDARYL (DIPHENYDRAMINE) [Suspect]
     Indication: HYPERSENSITIVITY
     Dosage: ORAL
     Route: 048

REACTIONS (1)
  - CONVULSION [None]
